FAERS Safety Report 22193570 (Version 1)
Quarter: 2023Q2

REPORT INFORMATION
  Report Type: Spontaneous
  Country: US (occurrence: US)
  Receive Date: 20230410
  Receipt Date: 20230410
  Transmission Date: 20230722
  Serious: Yes (Other)
  Sender: FDA-Public Use
  Company Number: US-AMERICAN REGENT INC-2023000853

PATIENT
  Age: 49 Year
  Sex: Female

DRUGS (14)
  1. PAMIDRONATE DISODIUM [Suspect]
     Active Substance: PAMIDRONATE DISODIUM
     Indication: Hypercalcaemia of malignancy
     Dosage: 60 MILLIGRAM, ONCE
     Route: 042
  2. PAMIDRONATE DISODIUM [Suspect]
     Active Substance: PAMIDRONATE DISODIUM
     Dosage: 60 MILLIGRAM, ONCE; ON DAY 2
     Route: 042
  3. PAMIDRONATE DISODIUM [Suspect]
     Active Substance: PAMIDRONATE DISODIUM
     Dosage: 60 MILLIGRAM, ONCE; ON DAY 9
     Route: 042
  4. FUROSEMIDE [Suspect]
     Active Substance: FUROSEMIDE
     Indication: Hypervolaemia
     Dosage: UNK; STARTED DAILY ON DAY 7
     Route: 042
  5. FUROSEMIDE [Suspect]
     Active Substance: FUROSEMIDE
     Indication: Hypercalcaemia
  6. CALCITONIN [Suspect]
     Active Substance: CALCITONIN
     Indication: Hypercalcaemia
     Dosage: UNK; X2 ON DAY 2
     Route: 065
  7. CALCITONIN [Suspect]
     Active Substance: CALCITONIN
     Dosage: UNK; X2 ON DAY 4
     Route: 065
  8. CALCITONIN [Suspect]
     Active Substance: CALCITONIN
     Dosage: UNK; ON DAY 12
     Route: 065
  9. CALCITONIN [Suspect]
     Active Substance: CALCITONIN
     Dosage: UNK; ON DAY 13
     Route: 065
  10. SODIUM CHLORIDE [Concomitant]
     Active Substance: SODIUM CHLORIDE
     Indication: Hypercalcaemia
     Dosage: UNK
     Route: 065
  11. SODIUM CHLORIDE [Concomitant]
     Active Substance: SODIUM CHLORIDE
     Dosage: UNK; ON DAY 1
  12. SODIUM CHLORIDE [Concomitant]
     Active Substance: SODIUM CHLORIDE
     Dosage: UNK; DISCONTINUED ON DAY 6
  13. AZACITIDINE [Concomitant]
     Active Substance: AZACITIDINE
     Indication: Myeloid leukaemia
     Dosage: UNK
     Route: 065
  14. VENETOCLAX [Concomitant]
     Active Substance: VENETOCLAX
     Indication: Myeloid leukaemia
     Dosage: UNK
     Route: 065

REACTIONS (4)
  - Hypercalcaemia of malignancy [Not Recovered/Not Resolved]
  - Drug ineffective [Not Recovered/Not Resolved]
  - Drug ineffective for unapproved indication [Not Recovered/Not Resolved]
  - Product use in unapproved indication [Unknown]
